FAERS Safety Report 13696358 (Version 1)
Quarter: 2017Q2

REPORT INFORMATION
  Report Type: Spontaneous
  Country: US (occurrence: US)
  Receive Date: 20170628
  Receipt Date: 20170628
  Transmission Date: 20170830
  Serious: No
  Sender: FDA-Public Use
  Company Number: US-PHARMING GROUP N.V.-PHAUS2017000078

PATIENT

DRUGS (3)
  1. RUCONEST [Suspect]
     Active Substance: HUMAN C1-ESTERASE INHIBITOR
     Indication: COMPLEMENT DEFICIENCY DISEASE
     Dosage: 3350 IU, QOD
     Route: 042
     Dates: start: 20151009
  2. RUCONEST [Suspect]
     Active Substance: HUMAN C1-ESTERASE INHIBITOR
     Dosage: AN UNSCHEDULED DOSE
     Route: 042
     Dates: start: 20170525
  3. RUCONEST [Suspect]
     Active Substance: HUMAN C1-ESTERASE INHIBITOR
     Dosage: 1 DOSE
     Route: 042
     Dates: start: 20170531

REACTIONS (2)
  - Localised infection [Unknown]
  - Swelling [Unknown]

NARRATIVE: CASE EVENT DATE: 20170601
